FAERS Safety Report 7889911-2 (Version None)
Quarter: 2011Q4

REPORT INFORMATION
  Report Type: 
  Country: None (occurrence: None)
  Receive Date: 20111103
  Receipt Date: 20111024
  Transmission Date: 20120403
  Serious: Yes (Hospitalization, Other)
  Sender: FDA-Public Use
  Company Number: KR-ELI_LILLY_AND_COMPANY-KR201008001263

PATIENT
  Age: 80 Year
  Sex: Female
  Weight: 40 kg

DRUGS (4)
  1. HUMALOG MIX 75/25 [Suspect]
     Indication: TYPE 2 DIABETES MELLITUS
     Dosage: 15 U, 2/D
     Route: 058
     Dates: start: 20100618
  2. HUMALOG MIX 75/25 [Suspect]
     Dosage: 58 U, (34U/24U PER DAY)
     Route: 058
     Dates: start: 20100721
  3. HUMALOG MIX 75/25 [Suspect]
     Dosage: 62 U, (38U/24U PER DAY)
     Route: 058
     Dates: start: 20100725
  4. HUMALOG MIX 75/25 [Suspect]
     Dosage: 22 U, QD (8U/8U/6U PER DAY)
     Route: 058

REACTIONS (7)
  - DIABETIC FOOT [None]
  - ANGIOPATHY [None]
  - PULMONARY OEDEMA [None]
  - RENAL IMPAIRMENT [None]
  - DYSPNOEA [None]
  - ASTHENIA [None]
  - BLOOD GLUCOSE INCREASED [None]
